FAERS Safety Report 6366555-5 (Version None)
Quarter: 2009Q3

REPORT INFORMATION
  Report Type: 
  Country: None (occurrence: None)
  Receive Date: 20090921
  Receipt Date: 20090907
  Transmission Date: 20100115
  Serious: Yes (Hospitalization)
  Sender: FDA-Public Use
  Company Number: IT-BRISTOL-MYERS SQUIBB COMPANY-14734362

PATIENT
  Age: 46 Year
  Sex: Male
  Weight: 78 kg

DRUGS (3)
  1. CETUXIMAB [Suspect]
     Indication: NON-SMALL CELL LUNG CANCER
     Dosage: STRENGTH: 5MG/ML RECENT INF:27JUL09
     Route: 042
     Dates: start: 20090720, end: 20090727
  2. CISPLATIN [Suspect]
     Indication: NON-SMALL CELL LUNG CANCER
     Dosage: TAKEN ON DAY 1 OF 21 DAY CYCLE. RECENT INFUSION 21JUL09.
     Route: 042
     Dates: start: 20090721, end: 20090721
  3. GEMCITABINE [Suspect]
     Indication: NON-SMALL CELL LUNG CANCER
     Dosage: ON DAYS 1,8 OF 21DAY CYCLE RECENT INF:27JUL09
     Route: 042
     Dates: start: 20090720, end: 20090727

REACTIONS (1)
  - THROMBOCYTOPENIA [None]
